FAERS Safety Report 17327805 (Version 1)
Quarter: 2020Q1

REPORT INFORMATION
  Report Type: Spontaneous
  Country: SE (occurrence: SE)
  Receive Date: 20200127
  Receipt Date: 20200127
  Transmission Date: 20200409
  Serious: Yes (Hospitalization)
  Sender: FDA-Public Use
  Company Number: SE-MYLANLABS-2020M1008950

PATIENT
  Age: 14 Year
  Sex: Female

DRUGS (1)
  1. LERGIGAN (PROMETHAZINE HYDROCHLORIDE) [Suspect]
     Active Substance: PROMETHAZINE HYDROCHLORIDE
     Indication: PRODUCT USED FOR UNKNOWN INDICATION
     Dosage: 1.25 GRAM
     Route: 048
     Dates: start: 20180731, end: 20180731

REACTIONS (6)
  - Intentional self-injury [Unknown]
  - Confusional state [Unknown]
  - Hallucination [Unknown]
  - Intentional overdose [Unknown]
  - Anxiety [Unknown]
  - Tachycardia [Unknown]

NARRATIVE: CASE EVENT DATE: 20180731
